FAERS Safety Report 7501825-6 (Version None)
Quarter: 2011Q2

REPORT INFORMATION
  Report Type: 
  Country: None (occurrence: None)
  Receive Date: 20110525
  Receipt Date: 20110111
  Transmission Date: 20111010
  Serious: Yes (Hospitalization)
  Sender: FDA-Public Use
  Company Number: US-BAYER-201021143NA

PATIENT
  Age: 37 Year
  Sex: Female
  Weight: 49.091 kg

DRUGS (17)
  1. ACYCLOVIR [Concomitant]
     Indication: POSTPARTUM DEPRESSION
     Dates: start: 20080709, end: 20080716
  2. YASMIN [Suspect]
     Indication: MENSTRUAL CYCLE MANAGEMENT
     Dosage: AS USED DOSE: UNK
     Route: 048
     Dates: start: 20080311
  3. ANTIMIGRAINE PREPARATIONS [Concomitant]
     Dates: start: 20020101
  4. LEXAPRO [Concomitant]
     Indication: POSTPARTUM DEPRESSION
     Route: 048
     Dates: start: 20081230, end: 20090324
  5. ACYCLOVIR [Concomitant]
     Indication: RASH
  6. KAPIDEX [Concomitant]
     Dosage: 60 MG, QD
     Route: 048
     Dates: start: 20090223
  7. DROSPIRENONE AND ETHINYL ESTRADIOL [Suspect]
     Indication: PRODUCT USED FOR UNKNOWN INDICATION
     Dosage: AS USED DOSE: UNK
     Route: 065
     Dates: start: 20080301
  8. ACETAMINOPHEN [Concomitant]
     Indication: MENSTRUAL CYCLE MANAGEMENT
  9. ZOVIA 1/35E-21 [Concomitant]
  10. YAZ [Suspect]
     Indication: MENORRHAGIA
     Dosage: AS USED DOSE: UNK
     Route: 048
     Dates: start: 20090622, end: 20090801
  11. LEVONORGESTREL + ETHINYL ESTRADIOL [Concomitant]
     Dates: start: 20020101, end: 20050101
  12. ZOMIG [Concomitant]
     Dates: start: 20020101
  13. YASMIN [Suspect]
     Indication: MENORRHAGIA
  14. YAZ [Suspect]
     Indication: MENSTRUAL CYCLE MANAGEMENT
  15. MOTRIN [Concomitant]
     Indication: BACK PAIN
     Dates: start: 19900101
  16. PERCOCET [Concomitant]
     Dosage: 1-2 TABS EVERY 4-6 HOURS
     Dates: start: 20090401, end: 20090623
  17. ALIMENTARY TRACT AND METABOLISM [Concomitant]
     Indication: ABDOMINAL PAIN UPPER

REACTIONS (7)
  - ABDOMINAL PAIN [None]
  - GASTROOESOPHAGEAL REFLUX DISEASE [None]
  - ABDOMINAL PAIN UPPER [None]
  - ABDOMINAL PAIN LOWER [None]
  - BILIARY DYSKINESIA [None]
  - UTERINE ENLARGEMENT [None]
  - BILIARY COLIC [None]
